FAERS Safety Report 12763663 (Version 1)
Quarter: 2016Q3

REPORT INFORMATION
  Report Type: Spontaneous
  Country: US (occurrence: US)
  Receive Date: 20160920
  Receipt Date: 20160920
  Transmission Date: 20161109
  Serious: Yes (Hospitalization)
  Sender: FDA-Public Use
  Company Number: US-UNICHEM LABORATORIES LIMITED-UCM201609-000207

PATIENT
  Age: 11 Year
  Sex: Male

DRUGS (4)
  1. PHENOBARBITAL. [Concomitant]
     Active Substance: PHENOBARBITAL
  2. DIAZEPAM. [Concomitant]
     Active Substance: DIAZEPAM
  3. TOPIRAMATE. [Suspect]
     Active Substance: TOPIRAMATE
  4. BACLOFEN. [Concomitant]
     Active Substance: BACLOFEN

REACTIONS (9)
  - Acidosis [Unknown]
  - Hepatic encephalopathy [Unknown]
  - Hyperammonaemia [Recovering/Resolving]
  - Hypovolaemic shock [Unknown]
  - Coagulopathy [Recovered/Resolved]
  - Toxicity to various agents [Unknown]
  - Acute kidney injury [Unknown]
  - Liver injury [Recovering/Resolving]
  - Acute hepatic failure [Recovering/Resolving]
